FAERS Safety Report 10892788 (Version 2)
Quarter: 2015Q4

REPORT INFORMATION
  Report Type: Spontaneous
  Country: GB (occurrence: GB)
  Receive Date: 20150306
  Receipt Date: 20151209
  Transmission Date: 20160304
  Serious: Yes (Hospitalization)
  Sender: FDA-Public Use
  Company Number: GB-WATSON-2015-04168

PATIENT
  Age: 15 Year
  Sex: Male
  Weight: 72 kg

DRUGS (1)
  1. TETRACYCLINE (UNKNOWN) [Suspect]
     Active Substance: TETRACYCLINE
     Indication: ACNE
     Dosage: 250 MG, DAILY
     Route: 048
     Dates: start: 20150104, end: 20150208

REACTIONS (7)
  - Urethritis [Recovered/Resolved]
  - Skin exfoliation [Recovered/Resolved]
  - Influenza like illness [Recovered/Resolved]
  - Stevens-Johnson syndrome [Recovered/Resolved]
  - Conjunctivitis [Recovered/Resolved]
  - Stomatitis [Recovered/Resolved]
  - Pharyngitis [Recovered/Resolved]

NARRATIVE: CASE EVENT DATE: 201501
